FAERS Safety Report 19516594 (Version 1)
Quarter: 2021Q3

REPORT INFORMATION
  Report Type: Spontaneous
  Country: US (occurrence: US)
  Receive Date: 20210709
  Receipt Date: 20210709
  Transmission Date: 20211014
  Serious: Yes (Other)
  Sender: FDA-Public Use
  Company Number: US-ASTELLAS-2020US034406

PATIENT
  Age: 94 Year
  Sex: Female
  Weight: 38 kg

DRUGS (2)
  1. LEVOTHYROXINE. [Concomitant]
     Active Substance: LEVOTHYROXINE
     Indication: PRODUCT USED FOR UNKNOWN INDICATION
     Dosage: UNK UNK, UNKNOWN FREQ.
     Route: 065
  2. MYRBETRIQ [Suspect]
     Active Substance: MIRABEGRON
     Indication: PRODUCT USED FOR UNKNOWN INDICATION
     Route: 065
     Dates: start: 20200922, end: 20200925

REACTIONS (10)
  - Headache [Unknown]
  - Feeling abnormal [Unknown]
  - Asthenia [Unknown]
  - Swollen tongue [Recovered/Resolved]
  - Cerebrovascular accident [Unknown]
  - Coordination abnormal [Unknown]
  - Throat tightness [Unknown]
  - Angioedema [Unknown]
  - Dry mouth [Unknown]
  - Lip swelling [Recovered/Resolved]
